FAERS Safety Report 10173152 (Version 1)
Quarter: 2014Q2

REPORT INFORMATION
  Report Type: Spontaneous
  Country: US (occurrence: US)
  Receive Date: 20140515
  Receipt Date: 20140515
  Transmission Date: 20141212
  Serious: No
  Sender: FDA-Public Use
  Company Number: US-PFIZER INC-2014129624

PATIENT
  Age: 78 Year
  Sex: Female
  Weight: 55.78 kg

DRUGS (4)
  1. ADVIL [Suspect]
     Indication: INSOMNIA
     Dosage: 200 MG, AS NEEDED
     Route: 048
  2. ADVIL [Suspect]
     Indication: PAIN
  3. ADVIL [Suspect]
     Indication: HEADACHE
  4. TRICOR [Concomitant]
     Indication: BLOOD CHOLESTEROL ABNORMAL
     Dosage: UNK

REACTIONS (4)
  - Off label use [Unknown]
  - Foreign body [Unknown]
  - Oropharyngeal pain [Recovered/Resolved]
  - Dyspepsia [Unknown]
